FAERS Safety Report 18577059 (Version 2)
Quarter: 2021Q1

REPORT INFORMATION
  Report Type: Spontaneous
  Country: US (occurrence: US)
  Receive Date: 20201203
  Receipt Date: 20210111
  Transmission Date: 20210419
  Serious: Yes (Other)
  Sender: FDA-Public Use
  Company Number: US-UCBSA-2020049063

PATIENT
  Age: 24 Year

DRUGS (4)
  1. CARBAMAZEPINE. [Concomitant]
     Active Substance: CARBAMAZEPINE
     Indication: PRODUCT USED FOR UNKNOWN INDICATION
     Dosage: UNK
  2. VIMPAT [Suspect]
     Active Substance: LACOSAMIDE
     Indication: GENERALISED TONIC-CLONIC SEIZURE
     Dosage: 400 MG
     Dates: start: 202006
  3. VIMPAT [Suspect]
     Active Substance: LACOSAMIDE
     Dosage: 450 MG
  4. KLONOPIN [Concomitant]
     Active Substance: CLONAZEPAM
     Indication: GENERALISED TONIC-CLONIC SEIZURE
     Dosage: 0.5 MILLIGRAM, 2X/DAY (BID)

REACTIONS (3)
  - Anxiety [Unknown]
  - Blood ketone body decreased [Unknown]
  - Generalised tonic-clonic seizure [Recovering/Resolving]
